FAERS Safety Report 10540921 (Version 1)
Quarter: 2014Q4

REPORT INFORMATION
  Report Type: Spontaneous
  Country: US (occurrence: None)
  Receive Date: 20141010
  Receipt Date: 20141010
  Transmission Date: 20150529
  Serious: No
  Sender: FDA-Public Use
  Company Number: 163-POMAL-14062446

PATIENT
  Age: 72 Year
  Sex: Male
  Weight: 79.38 kg

DRUGS (4)
  1. POMALYST [Suspect]
     Active Substance: POMALIDOMIDE
     Indication: PLASMA CELL MYELOMA
     Dosage: 4 MG, 21 IN 21 D, PO
     Route: 048
     Dates: start: 20140531
  2. VELCADE [Concomitant]
     Active Substance: BORTEZOMIB
  3. DOCUSATE SODIUM(DOCUSATE SODIUM) (UNKNOWN) [Concomitant]
  4. NEXIUM (ESOMEPRAZOLE) (UNKNOWN) [Concomitant]

REACTIONS (4)
  - Fatigue [None]
  - Dry mouth [None]
  - Dysgeusia [None]
  - Constipation [None]

NARRATIVE: CASE EVENT DATE: 20140531
